FAERS Safety Report 8464381-4 (Version None)
Quarter: 2012Q2

REPORT INFORMATION
  Report Type: 
  Country: None (occurrence: None)
  Receive Date: 20120626
  Receipt Date: 20120614
  Transmission Date: 20120825
  Serious: Yes (Hospitalization)
  Sender: FDA-Public Use
  Company Number: CA-BRISTOL-MYERS SQUIBB COMPANY-16689234

PATIENT
  Age: 36 Year
  Sex: Male

DRUGS (15)
  1. NEXIUM [Concomitant]
  2. PLAQUENIL [Concomitant]
  3. DOCUSATE [Concomitant]
  4. CALCIUM [Concomitant]
  5. CYCLOBENZAPRINE [Concomitant]
  6. ORENCIA [Suspect]
     Indication: PSORIATIC ARTHROPATHY
     Dosage: 37 INFUSIONS,LAST INFUSION:24MAY2012
     Route: 042
     Dates: start: 20090824
  7. ISONIAZID [Concomitant]
  8. MYOCHRYSINE [Concomitant]
  9. SORIATANE [Concomitant]
     Dosage: SORIATANE DOVOBET
  10. ALTACE [Concomitant]
  11. SULFASALAZINE [Concomitant]
  12. ARAVA [Concomitant]
  13. PREDNISONE [Concomitant]
  14. FOSAMAX [Concomitant]
  15. NAPROSYN [Concomitant]

REACTIONS (1)
  - NEPHROLITHIASIS [None]
